FAERS Safety Report 24782847 (Version 1)
Quarter: 2024Q4

REPORT INFORMATION
  Report Type: Spontaneous
  Country: FR (occurrence: FR)
  Receive Date: 20241227
  Receipt Date: 20241227
  Transmission Date: 20250114
  Serious: Yes (Life-Threatening, Hospitalization)
  Sender: MYLAN
  Company Number: FR-MYLANLABS-2024M1115071

PATIENT
  Age: 59 Year
  Sex: Male

DRUGS (5)
  1. DOXYCYCLINE [Suspect]
     Active Substance: DOXYCYCLINE
     Indication: Infection
     Dosage: UNK
     Route: 065
  2. DOXYCYCLINE [Suspect]
     Active Substance: DOXYCYCLINE
     Indication: Exposure to contaminated water
  3. AMIODARONE [Suspect]
     Active Substance: AMIODARONE
     Indication: Ventricular arrhythmia
     Dosage: UNK
     Route: 042
  4. LANDIOLOL [Suspect]
     Active Substance: LANDIOLOL
     Indication: Ventricular arrhythmia
     Dosage: UNK
     Route: 042
  5. LIDOCAINE [Suspect]
     Active Substance: LIDOCAINE
     Indication: Ventricular arrhythmia
     Dosage: UNK
     Route: 042

REACTIONS (5)
  - Eosinophilic myocarditis [Recovered/Resolved]
  - Ventricular arrhythmia [Recovered/Resolved]
  - Cardiogenic shock [Recovered/Resolved]
  - Cardio-respiratory arrest [Recovered/Resolved]
  - Drug ineffective [Unknown]
